FAERS Safety Report 7482346-6 (Version None)
Quarter: 2011Q2

REPORT INFORMATION
  Report Type: 
  Country: None (occurrence: None)
  Receive Date: 20110516
  Receipt Date: 20110509
  Transmission Date: 20111010
  Serious: Yes (Hospitalization)
  Sender: FDA-Public Use
  Company Number: FR-PFIZER INC-2011098520

PATIENT
  Age: 31 Year
  Sex: Female

DRUGS (9)
  1. PREDNISONE [Suspect]
     Dosage: 5 MG, 1X/DAY
     Route: 048
     Dates: start: 20080423
  2. VALGANCICLOVIR [Concomitant]
     Dosage: UNK
  3. SIROLIMUS [Suspect]
     Indication: IMMUNOSUPPRESSANT DRUG THERAPY
     Dosage: UNK
     Dates: start: 20080101, end: 20080401
  4. TACROLIMUS [Suspect]
     Indication: IMMUNOSUPPRESSANT DRUG THERAPY
     Dosage: UNK
     Dates: end: 20080401
  5. PREDNISONE [Suspect]
     Indication: IMMUNOSUPPRESSANT DRUG THERAPY
     Dosage: UNK
     Dates: end: 20080401
  6. CELLCEPT [Suspect]
     Indication: IMMUNOSUPPRESSANT DRUG THERAPY
     Dosage: UNK
     Dates: end: 20080401
  7. SIROLIMUS [Suspect]
     Dosage: 3 MG, 1X/DAY
     Route: 048
     Dates: start: 20080421
  8. TACROLIMUS [Suspect]
     Dosage: 2.5 MG, 1X/DAY
     Dates: start: 20080421, end: 20080422
  9. CELLCEPT [Suspect]
     Dosage: 1 G, 1X/DAY
     Route: 048
     Dates: start: 20080421

REACTIONS (2)
  - ESCHERICHIA URINARY TRACT INFECTION [None]
  - SEPTIC SHOCK [None]
